FAERS Safety Report 17224928 (Version 3)
Quarter: 2020Q1

REPORT INFORMATION
  Report Type: Spontaneous
  Country: US (occurrence: US)
  Receive Date: 20200102
  Receipt Date: 20200121
  Transmission Date: 20200409
  Serious: Yes (Other)
  Sender: FDA-Public Use
  Company Number: US-PFIZER INC-2019559213

PATIENT
  Age: 52 Year
  Sex: Female
  Weight: 88.45 kg

DRUGS (25)
  1. FERROUS SULFATE. [Concomitant]
     Active Substance: FERROUS SULFATE
     Indication: BLOOD IRON DECREASED
     Dosage: 325 MG, 2X/DAY (ONE TWICE A DAY)
  2. PREGABALIN. [Concomitant]
     Active Substance: PREGABALIN
     Dosage: 200 MG, 3X/DAY (ONE THREE TIMES DAILY)
  3. PROAIR HFA [Concomitant]
     Active Substance: ALBUTEROL SULFATE
     Indication: ASTHMA
  4. REVATIO [Suspect]
     Active Substance: SILDENAFIL CITRATE
     Indication: SCLERODERMA
     Dosage: UNK
  5. PROAIR HFA [Concomitant]
     Active Substance: ALBUTEROL SULFATE
     Indication: CHRONIC OBSTRUCTIVE PULMONARY DISEASE
     Dosage: UNK UNK, AS NEEDED (2 PUFFS BY MOUTH EVERY 4 HOURS AS NEEDED)
     Route: 048
  6. MONTELUKAST [Concomitant]
     Active Substance: MONTELUKAST SODIUM
     Dosage: 10 MG, DAILY (ONE BY MOUTH EVERY DAY)
     Route: 048
  7. HYDROXYCHLOROQUINE [Concomitant]
     Active Substance: HYDROXYCHLOROQUINE
     Indication: ARTHRITIS
     Dosage: 200 MG, 2X/DAY (ONE TWICE DAILY)
  8. WARFARIN [Concomitant]
     Active Substance: WARFARIN
     Indication: CARDIAC DISORDER
     Dosage: 10 MG, UNK (THREE TIMES A WEEK)
     Dates: start: 20160120
  9. OMEPRAZOLE. [Concomitant]
     Active Substance: OMEPRAZOLE
     Dosage: 20 MG, 2X/DAY (ONE TWICE DAILY)
  10. REVATIO [Suspect]
     Active Substance: SILDENAFIL CITRATE
     Indication: RAYNAUD^S PHENOMENON
     Dosage: 20 MG, 3X/DAY
     Route: 048
  11. PROAIR HFA [Concomitant]
     Active Substance: ALBUTEROL SULFATE
     Indication: BRONCHITIS
  12. ATORVASTATIN [Concomitant]
     Active Substance: ATORVASTATIN
     Indication: BLOOD PRESSURE ABNORMAL
     Dosage: 20 MG, 1X/DAY (20 MG ONE BY MOUTH DAILY AT BEDTIME)
     Route: 048
  13. METOPROLOL SUCCINATE. [Concomitant]
     Active Substance: METOPROLOL SUCCINATE
     Dosage: 25 MG, DAILY (ONE BY MOUTH DAILY)
     Route: 048
  14. VITAMIN D2 [Concomitant]
     Active Substance: ERGOCALCIFEROL
     Indication: VITAMIN D DECREASED
     Dosage: 50000 IU, WEEKLY (ONE CAPSULE BY MOUTH ONE TIME WEEKLY FOR 12 WEEKS)
     Route: 048
  15. POTASSIUM [Concomitant]
     Active Substance: POTASSIUM
     Indication: BLOOD POTASSIUM DECREASED
     Dosage: 60 MG, 2X/DAY (10 MG; 6 TABLETS BY MOUTH TWICE A DAILY)
     Route: 048
  16. PRAZOSIN. [Concomitant]
     Active Substance: PRAZOSIN
     Dosage: 1 MG, UNK
     Route: 048
  17. PRAZOSIN. [Concomitant]
     Active Substance: PRAZOSIN
     Dosage: 2 MG, 3X/DAY (ONE BY MOUTH THREE TIMES A DAY)
     Route: 048
  18. FOLIC ACID. [Concomitant]
     Active Substance: FOLIC ACID
     Dosage: 1 MG, DAILY (BY MOUTH EVERY DAY)
     Route: 048
  19. WARFARIN [Concomitant]
     Active Substance: WARFARIN
     Dosage: 7.5 MG, UNK (FOUR TIMES A WEEK)
     Dates: start: 20160120
  20. ASPIRIN [ACETYLSALICYLIC ACID] [Concomitant]
     Active Substance: ASPIRIN
     Indication: CARDIAC DISORDER
     Dosage: 162 MG, 1X/DAY (81 MG, TWO EVERY MORNING)
  21. SPIRONOLACTONE. [Concomitant]
     Active Substance: SPIRONOLACTONE
     Indication: FLUID RETENTION
     Dosage: 50 MG, DAILY (25 MG, 2 TABLETS BY MOUTH DAILY)
     Route: 048
  22. TRINTELLIX [Concomitant]
     Active Substance: VORTIOXETINE HYDROBROMIDE
     Indication: DEPRESSION
     Dosage: 5 MG, 1X/DAY
  23. FLUTICASONE PROPIONATE. [Concomitant]
     Active Substance: FLUTICASONE PROPIONATE
     Indication: DYSPNOEA
     Dosage: UNK UNK, 1X/DAY (1 SPRAY IN EACH NOSTRIL ONCE DAILY)
     Route: 045
  24. TRAZODONE [Concomitant]
     Active Substance: TRAZODONE HYDROCHLORIDE
     Indication: INSOMNIA
     Dosage: UNK UNK, 1X/DAY (10 MG, 1-2 BY MOUTH AT BEDTIME EVERY NIGHT)
     Route: 048
  25. ONDANSETRON [Concomitant]
     Active Substance: ONDANSETRON
     Indication: ABDOMINAL DISCOMFORT
     Dosage: 4 MG, AS NEEDED (DISSOLVE ONE ON TONGUE AS NEEDED)
     Route: 060

REACTIONS (7)
  - Carotid artery stenosis [Unknown]
  - Intracranial aneurysm [Unknown]
  - Product use in unapproved indication [Unknown]
  - Cardiac disorder [Unknown]
  - Off label use [Unknown]
  - Spinal disorder [Unknown]
  - Blood potassium decreased [Unknown]

NARRATIVE: CASE EVENT DATE: 2016
